FAERS Safety Report 21228492 (Version 1)
Quarter: 2022Q3

REPORT INFORMATION
  Report Type: Spontaneous
  Country: US (occurrence: None)
  Receive Date: 20220818
  Receipt Date: 20220818
  Transmission Date: 20221027
  Serious: Yes (Hospitalization)
  Sender: FDA-Public Use
  Company Number: None

PATIENT
  Age: 74 Year
  Sex: Female

DRUGS (20)
  1. MYCOPHENOLIC ACID [Suspect]
     Active Substance: MYCOPHENOLIC ACID
     Indication: Heart transplant
     Dosage: FREQUENCY : TWICE A DAY;?
     Route: 048
     Dates: start: 20150717
  2. ALENDRONATE SOL [Concomitant]
  3. ALLOPURINOL [Concomitant]
     Active Substance: ALLOPURINOL
  4. AMLODIPINE TAB [Concomitant]
  5. BUMETANIDE TAB [Concomitant]
  6. CHLORTHALID TAB [Concomitant]
  7. CREON CAP [Concomitant]
  8. CYCLOSPORINE MOD CAP [Concomitant]
  9. ENVARSUS XR [Concomitant]
     Active Substance: TACROLIMUS
  10. ESCITALOPRAM TAB [Concomitant]
  11. GABAPENTIN [Concomitant]
     Active Substance: GABAPENTIN
  12. GAVILYTE-N SOL FLAV PK [Concomitant]
  13. HYDRALAZINE TAB [Concomitant]
  14. LATANOPROST SOL [Concomitant]
  15. MAGNESIUM POW GLYCINAT [Concomitant]
  16. OLOPATADINE SOL [Concomitant]
  17. OMEPRAZOLE SODIUM [Concomitant]
     Active Substance: OMEPRAZOLE SODIUM
  18. PREDNISONE [Concomitant]
     Active Substance: PREDNISONE
  19. SODIUM CITRA GRA DIHYDRAT [Concomitant]
  20. VALGANCICLOV TAB [Concomitant]

REACTIONS (1)
  - Fluid retention [None]

NARRATIVE: CASE EVENT DATE: 20220817
